FAERS Safety Report 9311012 (Version 1)
Quarter: 2013Q2

REPORT INFORMATION
  Report Type: Report from Study
  Country: CA (occurrence: CA)
  Receive Date: 20130528
  Receipt Date: 20130528
  Transmission Date: 20140414
  Serious: Yes (Other)
  Sender: FDA-Public Use
  Company Number: CA-JNJFOC-20130515524

PATIENT
  Sex: Female
  Weight: 48.54 kg

DRUGS (2)
  1. REMICADE [Suspect]
     Indication: PSORIATIC ARTHROPATHY
     Route: 042
  2. REMICADE [Suspect]
     Indication: ANKYLOSING SPONDYLITIS
     Route: 042

REACTIONS (7)
  - Toxicity to various agents [Unknown]
  - Depression [Unknown]
  - Dehydration [Unknown]
  - Weight decreased [Unknown]
  - Folliculitis [Not Recovered/Not Resolved]
  - Vomiting [Recovering/Resolving]
  - Alopecia [Unknown]
